FAERS Safety Report 13459896 (Version 3)
Quarter: 2018Q1

REPORT INFORMATION
  Report Type: Spontaneous
  Country: US (occurrence: US)
  Receive Date: 20170420
  Receipt Date: 20180219
  Transmission Date: 20180508
  Serious: No
  Sender: FDA-Public Use
  Company Number: US-BIOGEN-2017BI00388581

PATIENT
  Age: 46 Year
  Sex: Male

DRUGS (1)
  1. TECFIDERA [Suspect]
     Active Substance: DIMETHYL FUMARATE
     Indication: MULTIPLE SCLEROSIS
     Dosage: MAINTENANCE DOSE
     Route: 048
     Dates: start: 2013

REACTIONS (24)
  - Haematochezia [Unknown]
  - Depression [Not Recovered/Not Resolved]
  - Pain [Not Recovered/Not Resolved]
  - Decreased interest [Not Recovered/Not Resolved]
  - Carpal tunnel syndrome [Unknown]
  - Nephrolithiasis [Unknown]
  - Dysphagia [Unknown]
  - Arthritis [Unknown]
  - Musculoskeletal pain [Unknown]
  - Insomnia [Unknown]
  - Diarrhoea [Unknown]
  - Panic attack [Not Recovered/Not Resolved]
  - Paraesthesia [Unknown]
  - Epistaxis [Unknown]
  - Vomiting [Unknown]
  - Multiple sclerosis relapse [Not Recovered/Not Resolved]
  - Stress [Not Recovered/Not Resolved]
  - Throat tightness [Recovered/Resolved]
  - Weight decreased [Not Recovered/Not Resolved]
  - Blood pressure increased [Not Recovered/Not Resolved]
  - Hemianaesthesia [Unknown]
  - Memory impairment [Unknown]
  - Multiple allergies [Unknown]
  - Peripheral vascular disorder [Unknown]

NARRATIVE: CASE EVENT DATE: 201704
